FAERS Safety Report 5305622-1 (Version None)
Quarter: 2007Q1

REPORT INFORMATION
  Report Type: 
  Country: None (occurrence: None)
  Receive Date: 20070201
  Receipt Date: 20061229
  Transmission Date: 20070707
  Serious: No
  Sender: FDA-Public Use
  Company Number: 2006PV027533

PATIENT
  Age: 62 Year
  Sex: Male
  Weight: 103.4201 kg

DRUGS (4)
  1. BYETTA [Suspect]
     Indication: DIABETES MELLITUS NON-INSULIN-DEPENDENT
     Dosage: SEE IMAGE
     Route: 058
     Dates: start: 20060901, end: 20060901
  2. BYETTA [Suspect]
     Indication: DIABETES MELLITUS NON-INSULIN-DEPENDENT
     Dosage: SEE IMAGE
     Route: 058
     Dates: start: 20060901, end: 20061108
  3. ACTOS [Concomitant]
  4. PRANDIN [Concomitant]

REACTIONS (8)
  - BLOOD GLUCOSE FLUCTUATION [None]
  - BLOOD GLUCOSE INCREASED [None]
  - CHEST PAIN [None]
  - DYSGEUSIA [None]
  - DYSPEPSIA [None]
  - GLYCOSYLATED HAEMOGLOBIN INCREASED [None]
  - VOMITING [None]
  - WEIGHT DECREASED [None]
